FAERS Safety Report 8548549 (Version 2)
Quarter: 2013Q4

REPORT INFORMATION
  Report Type: Spontaneous
  Country: US (occurrence: US)
  Receive Date: 20120507
  Receipt Date: 20131106
  Transmission Date: 20140711
  Serious: Yes (Hospitalization, Other)
  Sender: FDA-Public Use
  Company Number: PHEH2012US009369

PATIENT
  Sex: Male

DRUGS (10)
  1. TEKTURNA [Suspect]
     Dosage: 150 MG, QD
     Dates: start: 20100518, end: 20100910
  2. VITAMIN D [Concomitant]
     Dosage: UNK UKN, UNK
  3. LYRICA [Concomitant]
     Dosage: UNK UKN, UNK
  4. FISH OIL [Concomitant]
     Dosage: UNK UKN, UNK
  5. TRAMADOL [Concomitant]
     Dosage: UNK UKN, UNK
  6. PRILOSEC [Concomitant]
     Dosage: UNK UKN, UNK
  7. FLEXERIL [Concomitant]
     Dosage: UNK UKN, UNK
  8. ANTINAL [Concomitant]
     Dosage: UNK UKN, UNK
  9. WELLBUTRIN [Concomitant]
     Dosage: UNK UKN, UNK
  10. TRILIPIX [Concomitant]
     Dosage: UNK UKN, UNK

REACTIONS (12)
  - Syncope [Recovering/Resolving]
  - Suicidal ideation [Recovering/Resolving]
  - Renal failure [Recovering/Resolving]
  - Blood potassium increased [Unknown]
  - Renal impairment [Unknown]
  - Cerebrovascular accident [Unknown]
  - Hypotension [Unknown]
  - Pain [Unknown]
  - Anxiety [Unknown]
  - Anhedonia [Unknown]
  - Fatigue [Recovering/Resolving]
  - Gait disturbance [Recovering/Resolving]
